FAERS Safety Report 23301143 (Version 1)
Quarter: 2023Q4

REPORT INFORMATION
  Report Type: Spontaneous
  Country: US (occurrence: None)
  Receive Date: 20231214
  Receipt Date: 20231214
  Transmission Date: 20240109
  Serious: No
  Sender: FDA-Public Use
  Company Number: None

PATIENT
  Sex: Female

DRUGS (1)
  1. HUMIRA [Suspect]
     Active Substance: ADALIMUMAB
     Indication: Joint stiffness
     Dosage: 40MG/0.4ML EVERY 14 DAYS SUBCUTANEOUS? ?
     Route: 058
     Dates: start: 202211

REACTIONS (1)
  - Drug ineffective [None]
